FAERS Safety Report 8949093 (Version 1)
Quarter: 2012Q4

REPORT INFORMATION
  Report Type: 
  Country: US (occurrence: US)
  Receive Date: 20121206
  Receipt Date: 20121206
  Transmission Date: 20130627
  Serious: No
  Sender: FDA-Public Use
  Company Number: US-PFIZER INC-2012302064

PATIENT
  Age: 7 Year
  Sex: Female
  Weight: 21.32 kg

DRUGS (1)
  1. BICILLIN [Suspect]
     Indication: PYOGENIC ARTHRITIS INVOLVING LOWER LEG
     Dosage: UNK
     Route: 030
     Dates: start: 20120731

REACTIONS (1)
  - Injection site pain [Unknown]
